FAERS Safety Report 12926187 (Version 1)
Quarter: 2016Q4

REPORT INFORMATION
  Report Type: Spontaneous
  Country: US (occurrence: US)
  Receive Date: 20161108
  Receipt Date: 20161108
  Transmission Date: 20170207
  Serious: No
  Sender: FDA-Public Use
  Company Number: US-009507513-1610USA013101

PATIENT
  Age: 28 Year
  Sex: Female
  Weight: 65.76 kg

DRUGS (1)
  1. NEXPLANON [Suspect]
     Active Substance: ETONOGESTREL
     Indication: CONTRACEPTION
     Dosage: 1 DF, EVERY 3 YEARS LEFT ARM IMPLANT
     Route: 059
     Dates: start: 201504

REACTIONS (8)
  - Depression [Unknown]
  - Eye pain [Unknown]
  - Anxiety [Unknown]
  - Adnexa uteri pain [Unknown]
  - Emotional disorder [Unknown]
  - Menorrhagia [Unknown]
  - Loss of libido [Unknown]
  - Headache [Unknown]

NARRATIVE: CASE EVENT DATE: 201504
